FAERS Safety Report 4751572-9 (Version None)
Quarter: 2005Q3

REPORT INFORMATION
  Report Type: 
  Country: None (occurrence: None)
  Receive Date: 20050822
  Receipt Date: 20050815
  Transmission Date: 20060218
  Serious: Yes (Death, Hospitalization, Other)
  Sender: FDA-Public Use
  Company Number: 2005066214

PATIENT
  Age: 41 Year
  Sex: Male

DRUGS (7)
  1. FRAGMIN [Suspect]
     Indication: PANCREATIC CARCINOMA METASTATIC
     Dates: start: 20040813, end: 20041105
  2. GEMCITABINE (GEMCITABINE) [Suspect]
     Indication: PANCREATIC CARCINOMA METASTATIC
     Dates: start: 20040817, end: 20041202
  3. ACETAMINOPHEN W/ CODEINE [Concomitant]
  4. PARACETAMOL (PARACETAMOL) [Concomitant]
  5. IBUPROFEN [Concomitant]
  6. DEXAMETHASONE [Concomitant]
  7. WARFARIN (WARFARIN) [Concomitant]

REACTIONS (17)
  - ANAEMIA [None]
  - BLOOD ALKALINE PHOSPHATASE INCREASED [None]
  - BLOOD FIBRINOGEN DECREASED [None]
  - CEREBROVASCULAR ACCIDENT [None]
  - DISEASE PROGRESSION [None]
  - DIZZINESS [None]
  - DYSPNOEA [None]
  - HAEMATEMESIS [None]
  - HAEMORRHAGE INTRACRANIAL [None]
  - HAEMORRHAGIC STROKE [None]
  - MELAENA [None]
  - METASTASES TO LIVER [None]
  - PANCREATIC CARCINOMA METASTATIC [None]
  - PROTHROMBIN TIME PROLONGED [None]
  - PULMONARY FIBROSIS [None]
  - THROMBOCYTOPENIA [None]
  - WHITE BLOOD CELL COUNT INCREASED [None]
